FAERS Safety Report 16190505 (Version 2)
Quarter: 2019Q2

REPORT INFORMATION
  Report Type: Spontaneous
  Country: FR (occurrence: FR)
  Receive Date: 20190412
  Receipt Date: 20190603
  Transmission Date: 20190711
  Serious: Yes (Life-Threatening)
  Sender: FDA-Public Use
  Company Number: FR-MYLANLABS-2019M1034703

PATIENT
  Age: 14 Year
  Sex: Male
  Weight: 20 kg

DRUGS (3)
  1. VANCOMYCIN MYLAN [Suspect]
     Active Substance: VANCOMYCIN
     Indication: LUNG DISORDER
     Dosage: 60 MILLIGRAM/KILOGRAM, QD
     Route: 041
     Dates: start: 20181025, end: 20181025
  2. PIPERACILLIN/TAZOBACTAM [Suspect]
     Active Substance: PIPERACILLIN SODIUM\TAZOBACTAM SODIUM
     Indication: LUNG DISORDER
     Dosage: 200 MILLIGRAM/KILOGRAM, QD
     Route: 041
     Dates: start: 20181025, end: 20181025
  3. AMIKACINE MYLAN [Suspect]
     Active Substance: AMIKACIN
     Indication: LUNG DISORDER
     Dosage: 25 MILLIGRAM/KILOGRAM, QD
     Route: 041
     Dates: start: 20181025, end: 20181025

REACTIONS (1)
  - Anaphylactic shock [Recovered/Resolved]

NARRATIVE: CASE EVENT DATE: 20181025
